FAERS Safety Report 5067490-5 (Version None)
Quarter: 2006Q3

REPORT INFORMATION
  Report Type: 
  Country: None (occurrence: None)
  Receive Date: 20060727
  Receipt Date: 20060714
  Transmission Date: 20061208
  Serious: Yes (Life-Threatening, Hospitalization)
  Sender: FDA-Public Use
  Company Number: USA-2006-0024567

PATIENT
  Age: 1 Year
  Sex: Female

DRUGS (4)
  1. CEFDITOREN PIVOXIL (SIMILAR TO NDA 21-222) (CEFDITOREN PIVOXIL) OTHER [Suspect]
     Indication: BRONCHITIS ACUTE
     Dosage: 90 MG, DAILY, ORAL
     Route: 048
     Dates: start: 20060626, end: 20060630
  2. MASLETINE [Concomitant]
  3. MUCOSOL VAN (AMBROXOL HYDROCHLORIDE) [Concomitant]
  4. BIOFERMIN R (STREPTOCOCCUS FAECALIS) [Concomitant]

REACTIONS (6)
  - AGRANULOCYTOSIS [None]
  - CONDITION AGGRAVATED [None]
  - COUGH [None]
  - NEUTROPHIL PERCENTAGE DECREASED [None]
  - PYREXIA [None]
  - WHITE BLOOD CELL COUNT DECREASED [None]
